FAERS Safety Report 7007911-1 (Version None)
Quarter: 2010Q3

REPORT INFORMATION
  Report Type: 
  Country: None (occurrence: None)
  Receive Date: 20100920
  Receipt Date: 20100909
  Transmission Date: 20110219
  Serious: Yes (Hospitalization)
  Sender: FDA-Public Use
  Company Number: LTI2010A00193

PATIENT
  Age: 46 Year
  Sex: Male

DRUGS (5)
  1. ACTOPLUS MET [Suspect]
     Indication: TYPE 1 DIABETES MELLITUS
     Dosage: (1 DF) ORAL
     Route: 048
     Dates: start: 20081101, end: 20090316
  2. METFORMIN HCL [Suspect]
     Indication: TYPE 1 DIABETES MELLITUS
     Dosage: 3000 MG (1000 MG, 1 IN 3 D) ORAL
     Route: 048
     Dates: start: 20090316, end: 20090511
  3. JANUVIA [Suspect]
     Indication: TYPE 1 DIABETES MELLITUS
     Dosage: 100 MG (100 MG, 1 IN 1 D) ORAL
     Route: 048
     Dates: start: 20090316, end: 20090511
  4. TRUVADA [Concomitant]
  5. VIRAMUNE [Concomitant]

REACTIONS (4)
  - ACUTE MYOCARDIAL INFARCTION [None]
  - ARTERIOSCLEROSIS CORONARY ARTERY [None]
  - BLOOD AMYLASE INCREASED [None]
  - LIPASE INCREASED [None]
